FAERS Safety Report 12358640 (Version 2)
Quarter: 2016Q2

REPORT INFORMATION
  Report Type: Spontaneous
  Country: US (occurrence: US)
  Receive Date: 20160512
  Receipt Date: 20160512
  Transmission Date: 20160815
  Serious: No
  Sender: FDA-Public Use
  Company Number: US-BAYER-2016-086901

PATIENT
  Age: 60 Year
  Sex: Female
  Weight: 68.2 kg

DRUGS (1)
  1. ALEVE PM [Suspect]
     Active Substance: DIPHENHYDRAMINE HYDROCHLORIDE\NAPROXEN SODIUM
     Dosage: 1 DF, ONCE
     Dates: start: 20160430, end: 20160430

REACTIONS (11)
  - Flushing [Recovered/Resolved]
  - Burning sensation [Recovered/Resolved]
  - Feeling abnormal [None]
  - Abdominal pain upper [Recovered/Resolved]
  - Feeling hot [Recovered/Resolved]
  - Drug ineffective [None]
  - Product use issue [None]
  - Unevaluable event [None]
  - Paraesthesia [Recovered/Resolved]
  - Insomnia [None]
  - Sluggishness [Recovered/Resolved]

NARRATIVE: CASE EVENT DATE: 20160430
